FAERS Safety Report 5932158-7 (Version None)
Quarter: 2008Q4

REPORT INFORMATION
  Report Type: 
  Country: None (occurrence: None)
  Receive Date: 20081028
  Receipt Date: 20081015
  Transmission Date: 20090506
  Serious: Yes (Hospitalization)
  Sender: FDA-Public Use
  Company Number: US-JNJFOC-20080903488

PATIENT
  Sex: Male
  Weight: 76.7 kg

DRUGS (10)
  1. INFLIXIMAB [Suspect]
     Route: 042
  2. INFLIXIMAB [Suspect]
     Route: 042
  3. INFLIXIMAB [Suspect]
     Indication: INFLAMMATORY BOWEL DISEASE
     Route: 042
  4. ZITHROMAX [Concomitant]
  5. PENTASA [Concomitant]
  6. FERROUS SULFATE TAB [Concomitant]
  7. MULTI-VITAMIN [Concomitant]
  8. PREVACID [Concomitant]
  9. ANTIHISTAMINES [Concomitant]
     Indication: PREMEDICATION
  10. ACETAMINOPHEN [Concomitant]
     Indication: PREMEDICATION

REACTIONS (1)
  - CROHN'S DISEASE [None]
